FAERS Safety Report 8798926 (Version 3)
Quarter: 2012Q4

REPORT INFORMATION
  Report Type: 
  Country: US (occurrence: US)
  Receive Date: 20120920
  Receipt Date: 20121128
  Transmission Date: 20130627
  Serious: Yes (Other)
  Sender: FDA-Public Use
  Company Number: US-BAYER-2012-097649

PATIENT
  Age: 59 Year
  Sex: Female
  Weight: 99.77 kg

DRUGS (17)
  1. BETASERON [Suspect]
     Indication: SECONDARY PROGRESSIVE MULTIPLE SCLEROSIS
     Dosage: UNK
     Dates: start: 20020927, end: 20050101
  2. BETASERON [Suspect]
     Indication: SECONDARY PROGRESSIVE MULTIPLE SCLEROSIS
     Dosage: 8 miu, QOD
     Route: 058
     Dates: start: 20120606, end: 20121016
  3. BETASERON [Suspect]
     Indication: SECONDARY PROGRESSIVE MULTIPLE SCLEROSIS
     Dosage: UNK
     Route: 058
     Dates: start: 2012
  4. DIURETICS [Concomitant]
     Indication: CONGESTIVE HEART FAILURE
  5. HYDROCHLOROTHIAZIDE [Concomitant]
     Indication: EDEMA EXTREMITIES
  6. ANTI-ASTHMATICS [Concomitant]
     Indication: ASTHMA
  7. GALANTAMINE [Concomitant]
     Indication: MEMORY DISTURBANCE
     Dosage: 24 mg, QD
  8. LOSARTAN [Concomitant]
     Indication: HYPERTENSION
     Dosage: 25 mg, QD
  9. OMEPRAZOLE [Concomitant]
     Indication: GERD
     Dosage: 40 mg, QD
  10. ROPINIROLE HYDROCHLORIDE [Concomitant]
     Indication: RESTLESS LEG SYNDROME
     Dosage: 4 mg, QD
  11. FISH OIL [Concomitant]
     Indication: TRIGLYCERIDES ABNORMAL NOS
     Dosage: 2000 mg, BID
  12. KCL [Concomitant]
     Indication: POTASSIUM LOW
     Dosage: 20 ?g, QD
  13. LORATADINE [Concomitant]
     Indication: MULTIPLE ALLERGIES
     Dosage: 40 mg, QD
  14. SIMVASTATIN [Concomitant]
     Indication: HYPERLIPIDEMIA
     Dosage: 40 mg, QD
  15. TRIAMTERENE AND HYDROCHLOROTHIAZIDE [Concomitant]
     Indication: HYPERTENSION
     Dosage: 1 DF, QD
  16. CLORAZEPAM [Concomitant]
     Indication: ANXIETY
     Dosage: 0.5 mg, QD
  17. ASPIRIN [Concomitant]
     Indication: HEART DISORDER
     Dosage: 81 mg, QD

REACTIONS (12)
  - Abnormal weight gain [Not Recovered/Not Resolved]
  - Fluid retention [Not Recovered/Not Resolved]
  - Carpal tunnel syndrome [Not Recovered/Not Resolved]
  - Headache [Not Recovered/Not Resolved]
  - Muscular weakness [Not Recovered/Not Resolved]
  - Pain in extremity [Not Recovered/Not Resolved]
  - Dyspnoea exertional [Not Recovered/Not Resolved]
  - Dizziness [Not Recovered/Not Resolved]
  - Vertigo [Not Recovered/Not Resolved]
  - Oedema peripheral [Not Recovered/Not Resolved]
  - Head discomfort [Not Recovered/Not Resolved]
  - Weight decreased [Not Recovered/Not Resolved]
